FAERS Safety Report 8461405-5 (Version None)
Quarter: 2012Q2

REPORT INFORMATION
  Report Type: 
  Country: None (occurrence: None)
  Receive Date: 20120625
  Receipt Date: 20120615
  Transmission Date: 20120825
  Serious: No
  Sender: FDA-Public Use
  Company Number: US-JNJFOC-20120609896

PATIENT
  Sex: Female
  Weight: 164.2 kg

DRUGS (2)
  1. INVEGA SUSTENNA [Suspect]
     Indication: SCHIZOPHRENIA
     Route: 030
  2. MULTIPLE MEDICATIONS UNSPECIFIED [Concomitant]
     Indication: PRODUCT USED FOR UNKNOWN INDICATION
     Route: 065

REACTIONS (3)
  - NEEDLE ISSUE [None]
  - WRONG TECHNIQUE IN DRUG USAGE PROCESS [None]
  - CONDITION AGGRAVATED [None]
